FAERS Safety Report 20321563 (Version 1)
Quarter: 2022Q1

REPORT INFORMATION
  Report Type: Spontaneous
  Country: US (occurrence: US)
  Receive Date: 20220111
  Receipt Date: 20220111
  Transmission Date: 20220423
  Serious: Yes (Hospitalization, Other)
  Sender: FDA-Public Use
  Company Number: US-PROCTER_AND_GAMBLE-GS21123156

PATIENT
  Age: 34 Year
  Sex: Female

DRUGS (1)
  1. UNSPECIFIED INGREDIENT [Suspect]
     Active Substance: UNSPECIFIED INGREDIENT
     Dosage: SEVERAL TIMES A DAY FOR THE LAST FEW YEARS
     Route: 002

REACTIONS (47)
  - Hyperzincaemia [Unknown]
  - Gastrointestinal bacterial overgrowth [Unknown]
  - Copper deficiency [Unknown]
  - Toxicity to various agents [Unknown]
  - Bone marrow failure [Unknown]
  - Febrile neutropenia [Unknown]
  - Diarrhoea [Unknown]
  - Urinary tract infection [Unknown]
  - Escherichia test positive [Unknown]
  - Anaemia [Unknown]
  - Pyrexia [Unknown]
  - Abdominal pain upper [None]
  - Nausea [Unknown]
  - Vomiting [Unknown]
  - Asthenia [Unknown]
  - Abnormal loss of weight [Unknown]
  - Neutrophil count decreased [Recovered/Resolved]
  - Pallor [Unknown]
  - Gingival swelling [Unknown]
  - Haemoglobin decreased [Recovering/Resolving]
  - White blood cell count decreased [Recovered/Resolved]
  - Aspartate aminotransferase increased [Recovered/Resolved]
  - Alanine aminotransferase increased [Unknown]
  - Gamma-glutamyltransferase increased [Unknown]
  - Blood lactate dehydrogenase increased [Unknown]
  - Blood alkaline phosphatase increased [Unknown]
  - Blood folate decreased [Unknown]
  - Iron binding capacity total decreased [Unknown]
  - Amylase decreased [Unknown]
  - Lipase decreased [Unknown]
  - Hepatic steatosis [Unknown]
  - Intestinal dilatation [Unknown]
  - Oesophagogastroduodenoscopy abnormal [Unknown]
  - Colonoscopy abnormal [Unknown]
  - Non-alcoholic steatohepatitis [Unknown]
  - Bicytopenia [Unknown]
  - Normocytic anaemia [Unknown]
  - Leukopenia [Unknown]
  - Lymphocytosis [Unknown]
  - Biopsy bone marrow abnormal [Unknown]
  - Vitamin D decreased [Unknown]
  - Vitamin E decreased [Unknown]
  - Vitamin A decreased [Unknown]
  - Device use issue [Unknown]
  - Blood zinc increased [Unknown]
  - Blood copper decreased [Unknown]
  - Ceruloplasmin decreased [Unknown]
